FAERS Safety Report 10248120 (Version 1)
Quarter: 2014Q2

REPORT INFORMATION
  Report Type: Spontaneous
  Country: US (occurrence: US)
  Receive Date: 20140619
  Receipt Date: 20140619
  Transmission Date: 20141212
  Serious: No
  Sender: FDA-Public Use
  Company Number: US-009507513-1406USA003965

PATIENT
  Sex: Female

DRUGS (6)
  1. PEGINTRON [Suspect]
     Indication: HEPATITIS C
     Dosage: 0.4 ML/ONCE A WEEK
     Dates: start: 20130709, end: 201312
  2. PEGINTRON [Suspect]
     Dosage: UNKNOWN
     Dates: start: 201405
  3. REBETOL [Suspect]
     Indication: HEPATITIS C
     Dosage: UNK
     Dates: start: 20130709, end: 201312
  4. REBETOL [Suspect]
     Dosage: UNK
     Dates: start: 201405
  5. INCIVEK [Suspect]
     Indication: HEPATITIS C
     Dosage: UNK
     Dates: start: 20130709, end: 201312
  6. SOVALDI [Suspect]
     Dosage: UNK
     Dates: start: 201405

REACTIONS (3)
  - Red blood cell count decreased [Unknown]
  - Nausea [Unknown]
  - Product quality issue [Unknown]
